FAERS Safety Report 6124298-7 (Version None)
Quarter: 2009Q1

REPORT INFORMATION
  Report Type: 
  Country: None (occurrence: None)
  Receive Date: 20090317
  Receipt Date: 20090304
  Transmission Date: 20090719
  Serious: Yes (Other)
  Sender: FDA-Public Use
  Company Number: 2009AP000858

PATIENT
  Age: 85 Year
  Sex: Male

DRUGS (8)
  1. CIPROFLOXACIN [Suspect]
     Indication: HYPOPHAGIA
     Dates: start: 20070226
  2. CIPROFLOXACIN [Suspect]
     Indication: LETHARGY
     Dates: start: 20070226
  3. MIRTAZAPINE [Suspect]
     Indication: DEPRESSION
     Dates: start: 20050101
  4. CARBIDOPA AND LEVODOPA [Concomitant]
  5. TAMSULOSIN HCL [Concomitant]
  6. TRAVOPROST [Concomitant]
  7. METIPRANOLOL [Concomitant]
  8. FINASTERIDE [Concomitant]

REACTIONS (3)
  - DRUG INTERACTION [None]
  - DRUG LEVEL INCREASED [None]
  - MANIA [None]
